FAERS Safety Report 8886104 (Version 1)
Quarter: 2012Q4

REPORT INFORMATION
  Report Type: 
  Country: US (occurrence: US)
  Receive Date: 20121105
  Receipt Date: 20121105
  Transmission Date: 20130627
  Serious: Yes (Hospitalization, Other)
  Sender: FDA-Public Use
  Company Number: US-ASTRAZENECA-2012SE82516

PATIENT
  Age: 67 Year
  Sex: Male

DRUGS (17)
  1. CRESTOR [Suspect]
     Route: 048
     Dates: start: 20120918
  2. ASPIRIN [Concomitant]
     Route: 048
  3. FEXOFENADINE HCL [Concomitant]
     Indication: HYPERSENSITIVITY
     Route: 048
     Dates: start: 20101221
  4. FOLIC ACID [Concomitant]
     Route: 048
     Dates: start: 20120515
  5. HYDRALAZINE HCL [Concomitant]
     Route: 048
     Dates: start: 20120628
  6. IMDUR [Concomitant]
     Route: 048
     Dates: start: 20120517
  7. PRAVASTATIN SODIUM [Concomitant]
     Route: 048
     Dates: start: 20091208
  8. PROPRANOLOL HYDROCHLOROTHIAZID [Concomitant]
     Dosage: 40 MG - 25 MG
     Route: 048
     Dates: start: 20120514
  9. VITAMIN D2 [Concomitant]
     Dosage: 50000 UNITS EVERY WEEK
     Route: 048
     Dates: start: 20120517
  10. WELCHOL [Concomitant]
     Route: 048
     Dates: start: 20120515
  11. CLOPIDOGREL [Concomitant]
     Route: 048
  12. COLESEVELAM [Concomitant]
  13. OMEPRAZOLE [Concomitant]
     Route: 048
  14. POTASSIUM CHLORIDE [Concomitant]
  15. PROPRANOLOL [Concomitant]
     Route: 048
  16. TYLENOL [Concomitant]
     Indication: HEADACHE
     Dosage: 650 mg EVERY FOUR HOURS AS NEEDED
     Route: 048
  17. TYLENOL [Concomitant]
     Indication: BODY TEMPERATURE INCREASED
     Dosage: 650 mg EVERY FOUR HOURS AS NEEDED
     Route: 048

REACTIONS (4)
  - Hypertensive nephropathy [Unknown]
  - Rhabdomyolysis [Unknown]
  - Nausea [Unknown]
  - Drug hypersensitivity [Unknown]
